FAERS Safety Report 4924283-4 (Version None)
Quarter: 2006Q1

REPORT INFORMATION
  Report Type: 
  Country: None (occurrence: None)
  Receive Date: 20060227
  Receipt Date: 20060123
  Transmission Date: 20060701
  Serious: Yes (Life-Threatening)
  Sender: FDA-Public Use
  Company Number: CA-AVENTIS-200610718GDDC

PATIENT
  Age: 26 Year
  Sex: Female

DRUGS (4)
  1. KETEK [Suspect]
     Indication: SINUSITIS
     Route: 048
     Dates: start: 20060118, end: 20060118
  2. KETEK [Suspect]
     Indication: PHARYNGITIS
     Route: 048
     Dates: start: 20060118, end: 20060118
  3. KETEK [Concomitant]
     Indication: PHARYNGOLARYNGEAL PAIN
     Dosage: DOSE: UNK
     Dates: start: 20060105
  4. CEFZIL [Concomitant]
     Route: 048
     Dates: start: 20060118

REACTIONS (12)
  - ACUTE RESPIRATORY DISTRESS SYNDROME [None]
  - BLISTER [None]
  - COUGH [None]
  - DACRYOSTENOSIS ACQUIRED [None]
  - DEPRESSED LEVEL OF CONSCIOUSNESS [None]
  - ERYTHEMA [None]
  - PHARYNGOLARYNGEAL PAIN [None]
  - RESPIRATORY DISORDER [None]
  - SPEECH DISORDER [None]
  - SWELLING FACE [None]
  - TOXIC EPIDERMAL NECROLYSIS [None]
  - VOCAL CORD PARESIS [None]
